FAERS Safety Report 10080914 (Version 1)
Quarter: 2014Q2

REPORT INFORMATION
  Report Type: Spontaneous
  Country: US (occurrence: None)
  Receive Date: 20140415
  Receipt Date: 20140415
  Transmission Date: 20141212
  Serious: Yes (Hospitalization)
  Sender: FDA-Public Use
  Company Number: None

PATIENT
  Age: 58 Year
  Sex: Female
  Weight: 26.65 kg

DRUGS (19)
  1. ENOXAPARIN [Concomitant]
  2. HYDROCHLOROTHIAZIDE [Concomitant]
  3. HYDROCODONE/APAP [Concomitant]
  4. LISINOPRIL [Concomitant]
  5. MAGIC MOUTHWASH [Concomitant]
  6. MORPHINE [Concomitant]
  7. ONDANSETRON [Concomitant]
  8. OXYCODONE [Concomitant]
  9. VITAMIN D [Concomitant]
  10. OXALIPLATIN [Suspect]
  11. LEUCOVORIN [Suspect]
  12. 5-FU [Suspect]
  13. IRINOTECAN [Suspect]
  14. ATENOLOL [Concomitant]
  15. CELEXA [Concomitant]
  16. CREON [Concomitant]
  17. DEXAMETHASONE [Concomitant]
  18. DIAZEPAM [Concomitant]
  19. DULCOLAX [Concomitant]

REACTIONS (3)
  - Fatigue [None]
  - Hypotension [None]
  - Dehydration [None]
